FAERS Safety Report 8301785-4 (Version None)
Quarter: 2012Q2

REPORT INFORMATION
  Report Type: 
  Country: None (occurrence: None)
  Receive Date: 20120420
  Receipt Date: 20120411
  Transmission Date: 20120825
  Serious: Yes (Other)
  Sender: FDA-Public Use
  Company Number: US-SANOFI-AVENTIS-2012SA025187

PATIENT
  Age: 69 Year
  Sex: Female

DRUGS (3)
  1. SOLOSTAR [Suspect]
  2. NOVOLOG [Concomitant]
  3. LANTUS [Suspect]
     Dosage: DURING THE DAY DEPENDING ON SUGARS LEVELS DOSE:20 UNIT(S)
     Route: 058

REACTIONS (1)
  - LIVER DISORDER [None]
